FAERS Safety Report 7300909-5 (Version None)
Quarter: 2011Q1

REPORT INFORMATION
  Report Type: 
  Country: None (occurrence: None)
  Receive Date: 20110104
  Receipt Date: 20100426
  Transmission Date: 20110831
  Serious: Yes (Hospitalization, Disabling, Other)
  Sender: FDA-Public Use
  Company Number: 232391USA

PATIENT
  Sex: Female

DRUGS (6)
  1. MEDROXYPROGESTERONE ACETATE [Suspect]
  2. ESTROPIPATE [Suspect]
  3. ESTROPIPATE [Suspect]
  4. MEDROXYPROGESTERONE ACETATE [Suspect]
  5. PROGESTERONE [Suspect]
  6. ESTRADIOL [Suspect]

REACTIONS (1)
  - BREAST CANCER [None]
